FAERS Safety Report 17979747 (Version 1)
Quarter: 2020Q3

REPORT INFORMATION
  Report Type: Spontaneous
  Country: AR (occurrence: AR)
  Receive Date: 20200703
  Receipt Date: 20200703
  Transmission Date: 20201103
  Serious: Yes (Other)
  Sender: FDA-Public Use
  Company Number: AR-AMGEN-ARGSP2020106849

PATIENT
  Age: 69 Year
  Sex: Female

DRUGS (1)
  1. ENBREL [Suspect]
     Active Substance: ETANERCEPT
     Indication: RHEUMATOID ARTHRITIS
     Dosage: 50MG, WEEKLY( ONE PER WEEK)
     Route: 065
     Dates: start: 20190207

REACTIONS (11)
  - Throat tightness [Unknown]
  - Emotional distress [Unknown]
  - Chest discomfort [Unknown]
  - Suffocation feeling [Unknown]
  - Blood pressure abnormal [Unknown]
  - Agitation [Unknown]
  - Thyroid disorder [Unknown]
  - Heart rate increased [Unknown]
  - Liver disorder [Unknown]
  - Palpitations [Unknown]
  - Pain [Unknown]
